FAERS Safety Report 16162290 (Version 2)
Quarter: 2022Q1

REPORT INFORMATION
  Report Type: Spontaneous
  Country: IT (occurrence: IT)
  Receive Date: 20190405
  Receipt Date: 20220303
  Transmission Date: 20220423
  Serious: Yes (Hospitalization)
  Sender: FDA-Public Use
  Company Number: IT-TEVA-2005-02940

PATIENT
  Age: 58 Year
  Sex: Female

DRUGS (4)
  1. FLUOROURACIL SODIUM [Suspect]
     Active Substance: FLUOROURACIL SODIUM
     Indication: Adenocarcinoma gastric
     Dosage: 750 MILLIGRAM DAILY; ON DAYS 1-8
     Route: 042
     Dates: start: 200404
  2. DOCETAXEL [Suspect]
     Active Substance: DOCETAXEL
     Indication: Adenocarcinoma gastric
     Dosage: 75 MG/M2 DAILY; ON DAY 1
     Route: 042
     Dates: start: 200404
  3. CISPLATIN [Suspect]
     Active Substance: CISPLATIN
     Indication: Adenocarcinoma gastric
     Dosage: 75 MG/M2 DAILY; ON DAY 1
     Route: 042
     Dates: start: 200404
  4. DEXAMETHASONE [Suspect]
     Active Substance: DEXAMETHASONE
     Indication: Vomiting
     Dosage: 8 MILLIGRAM DAILY;
     Route: 065

REACTIONS (1)
  - Large intestine perforation [Not Recovered/Not Resolved]

NARRATIVE: CASE EVENT DATE: 20040101
